FAERS Safety Report 4405280-4 (Version None)
Quarter: 2004Q3

REPORT INFORMATION
  Report Type: 
  Country: None (occurrence: None)
  Receive Date: 20040716
  Receipt Date: 20040702
  Transmission Date: 20050211
  Serious: Yes (Hospitalization)
  Sender: FDA-Public Use
  Company Number: EM2004-0343

PATIENT
  Age: 69 Year
  Sex: Male

DRUGS (1)
  1. PROLEUKIN [Suspect]
     Indication: RENAL CELL CARCINOMA STAGE UNSPECIFIED
     Dosage: 18 MIU, BID, SUBCUTANEOUS
     Route: 058
     Dates: start: 20040315, end: 20040317

REACTIONS (6)
  - ARTHRALGIA [None]
  - ERYTHEMA [None]
  - MYALGIA [None]
  - PYREXIA [None]
  - REFUSAL OF TREATMENT BY PATIENT [None]
  - SWELLING FACE [None]
